FAERS Safety Report 9331108 (Version 3)
Quarter: 2013Q3

REPORT INFORMATION
  Report Type: Report from Study
  Country: US (occurrence: US)
  Receive Date: 20130605
  Receipt Date: 20130923
  Transmission Date: 20140515
  Serious: Yes (Hospitalization)
  Sender: FDA-Public Use
  Company Number: US-UCBSA-087393

PATIENT
  Age: 13 Year
  Sex: Male
  Weight: 43.6 kg

DRUGS (13)
  1. LACOSAMIDE [Suspect]
     Indication: EPILEPSY
     Dates: start: 20130530
  2. LACOSAMIDE [Suspect]
     Indication: EPILEPSY
     Dates: start: 20130507, end: 20130529
  3. LACOSAMIDE [Suspect]
     Indication: EPILEPSY
     Dates: start: 20130410, end: 20130507
  4. LACOSAMIDE [Suspect]
     Indication: EPILEPSY
     Dates: start: 20130226, end: 20130410
  5. KLONOPIN [Concomitant]
     Indication: MUSCLE SPASTICITY
     Route: 050
     Dates: start: 20040629
  6. DIASTAT ACUDIAL [Concomitant]
     Indication: EPILEPSY
     Route: 054
     Dates: start: 20061204
  7. BACLOFEN [Concomitant]
     Indication: MUSCLE SPASTICITY
     Route: 050
     Dates: start: 20050923, end: 20130528
  8. BACLOFEN [Concomitant]
     Indication: MUSCLE SPASTICITY
     Route: 048
     Dates: start: 20130529
  9. AMITRIPTYLINE [Concomitant]
     Indication: DROOLING
     Dosage: BEDTIME
     Route: 050
     Dates: start: 20060227
  10. AMITRIPTYLINE [Concomitant]
     Indication: DROOLING
     Dosage: BEDTIME
     Route: 050
     Dates: start: 20130529
  11. ROBINUL [Concomitant]
     Indication: DROOLING
     Route: 050
     Dates: start: 20050923
  12. TOPAMAX [Concomitant]
     Indication: EPILEPSY
     Route: 050
     Dates: start: 20130315
  13. TOPAMAX [Concomitant]
     Indication: EPILEPSY
     Dosage: BEDTIME
     Route: 050
     Dates: start: 20130314

REACTIONS (2)
  - Mental status changes [Recovered/Resolved]
  - Convulsion [Recovered/Resolved]
